FAERS Safety Report 5370489-2 (Version None)
Quarter: 2007Q2

REPORT INFORMATION
  Report Type: 
  Country: None (occurrence: None)
  Receive Date: 20070625
  Receipt Date: 20070625
  Transmission Date: 20071010
  Serious: Yes (Other)
  Sender: FDA-Public Use
  Company Number: None

PATIENT
  Age: 71 Year

DRUGS (1)
  1. BIAXIN [Suspect]
     Dosage: 500 MG BID PO
     Route: 048
     Dates: start: 20070220, end: 20070223

REACTIONS (4)
  - CONFUSIONAL STATE [None]
  - DYSGEUSIA [None]
  - INSOMNIA [None]
  - NAUSEA [None]
